FAERS Safety Report 12491906 (Version 1)
Quarter: 2016Q2

REPORT INFORMATION
  Report Type: Spontaneous
  Country: US (occurrence: None)
  Receive Date: 20160622
  Receipt Date: 20160622
  Transmission Date: 20160815
  Serious: Yes (Other)
  Sender: FDA-Public Use
  Company Number: None

PATIENT
  Age: 56 Year
  Sex: Female
  Weight: 57.61 kg

DRUGS (2)
  1. PAZEO [Suspect]
     Active Substance: OLOPATADINE HYDROCHLORIDE
     Indication: EYE ALLERGY
     Dosage: 2.5 DROP(S) ONCE A DAY INTO THE EYE
     Route: 031
     Dates: start: 20160620, end: 20160620
  2. METATOPORAL [Concomitant]

REACTIONS (8)
  - Eye pain [None]
  - Eye swelling [None]
  - Eye inflammation [None]
  - Product quality issue [None]
  - Lacrimation increased [None]
  - Corneal abrasion [None]
  - Ocular hyperaemia [None]
  - Instillation site pain [None]

NARRATIVE: CASE EVENT DATE: 20160620
